FAERS Safety Report 22634675 (Version 1)
Quarter: 2023Q2

REPORT INFORMATION
  Report Type: Report from Study
  Country: ES (occurrence: ES)
  Receive Date: 20230623
  Receipt Date: 20230623
  Transmission Date: 20230722
  Serious: Yes (Hospitalization)
  Sender: FDA-Public Use
  Company Number: None

PATIENT
  Age: 64 Year
  Sex: Male

DRUGS (4)
  1. STELARA [Suspect]
     Active Substance: USTEKINUMAB
     Indication: Spondyloarthropathy
     Dosage: 45MG / 12 SEMANAS
     Route: 058
     Dates: start: 20220912, end: 20220915
  2. STELARA [Suspect]
     Active Substance: USTEKINUMAB
  3. CORTICOTROPIN [Concomitant]
     Active Substance: CORTICOTROPIN
     Dosage: 50 MG /8 DIA
  4. METHOTREXATE [Concomitant]
     Active Substance: METHOTREXATE
     Dosage: 10 MG / ORAL / SEMANA
     Route: 058

REACTIONS (1)
  - Intestinal tuberculosis [Recovered/Resolved with Sequelae]

NARRATIVE: CASE EVENT DATE: 20220915
